FAERS Safety Report 7208549-3 (Version None)
Quarter: 2011Q1

REPORT INFORMATION
  Report Type: 
  Country: None (occurrence: None)
  Receive Date: 20110104
  Receipt Date: 20101123
  Transmission Date: 20110831
  Serious: Yes (Hospitalization)
  Sender: FDA-Public Use
  Company Number: US-BAYER-201029584NA

PATIENT
  Sex: Female
  Weight: 49.887 kg

DRUGS (11)
  1. IBUPROFEN [Concomitant]
     Dosage: UNK
     Dates: start: 20070101, end: 20090101
  2. VICODIN [Concomitant]
     Indication: PAIN
     Dosage: 5/500 Q5H
     Dates: start: 20070309
  3. YASMIN [Suspect]
     Indication: CONTRACEPTION
     Dosage: UNK
     Route: 048
     Dates: start: 20070214
  4. LEXAPRO [Concomitant]
     Indication: PREMENSTRUAL SYNDROME
     Dosage: UNK
     Dates: start: 20070214
  5. YAZ [Suspect]
     Indication: CONTRACEPTION
     Dosage: UNK
     Route: 048
     Dates: start: 20070215, end: 20070314
  6. YAZ [Suspect]
  7. YASMIN [Suspect]
  8. NSAID'S [Concomitant]
     Indication: PAIN
     Dosage: UNK
     Dates: start: 20070214
  9. YASMIN [Suspect]
     Indication: PREMENSTRUAL SYNDROME
  10. YAZ [Suspect]
     Indication: PREMENSTRUAL SYNDROME
  11. CELEBREX [Concomitant]
     Dosage: UNK
     Dates: start: 20070309

REACTIONS (5)
  - HYPOAESTHESIA [None]
  - OEDEMA PERIPHERAL [None]
  - PAIN IN EXTREMITY [None]
  - DEEP VEIN THROMBOSIS [None]
  - PARAESTHESIA [None]
